FAERS Safety Report 9961076 (Version 1)
Quarter: 2014Q1

REPORT INFORMATION
  Report Type: Report from Study
  Country: US (occurrence: US)
  Receive Date: 20140305
  Receipt Date: 20140305
  Transmission Date: 20141002
  Serious: No
  Sender: FDA-Public Use
  Company Number: US-ABBVIE-13P-163-1108097-00

PATIENT
  Age: 44 Year
  Sex: Female

DRUGS (12)
  1. HUMIRA [Suspect]
     Indication: CROHN^S DISEASE
     Dates: start: 20130327
  2. HUMALOG [Concomitant]
     Indication: DIABETES MELLITUS
     Dosage: 75/25-54 UNITS IN MORNING AND 50 UNITS AT NIGHT
  3. FOLIC ACID [Concomitant]
     Indication: PRODUCT USED FOR UNKNOWN INDICATION
  4. LOSARTAN [Concomitant]
     Indication: PRODUCT USED FOR UNKNOWN INDICATION
     Dosage: 50/12.5
  5. SIMVASTATIN [Concomitant]
     Indication: BLOOD CHOLESTEROL INCREASED
  6. LOPERAMIDE [Concomitant]
     Indication: DIARRHOEA
  7. TRAVATAN [Concomitant]
     Indication: DRY EYE
     Dosage: EYE DROPS TO BOTH EYES EVERY MORNING
  8. TRAVATAN [Concomitant]
     Indication: GLAUCOMA
  9. ADVAIR [Concomitant]
     Indication: PRODUCT USED FOR UNKNOWN INDICATION
     Dosage: 230/21 MCG
  10. VENTOLIN [Concomitant]
     Indication: ASTHMA
     Dosage: 1-2 TIMES PER DAY
  11. ZYRTEC [Concomitant]
     Indication: PRODUCT USED FOR UNKNOWN INDICATION
  12. FLONASE [Concomitant]
     Indication: PRODUCT USED FOR UNKNOWN INDICATION
     Dosage: 1 SPRAY PER NOSTRIL DAILY

REACTIONS (2)
  - Injection site vesicles [Recovered/Resolved]
  - Injection site vesicles [Recovering/Resolving]
